FAERS Safety Report 9735185 (Version 1)
Quarter: 2013Q4

REPORT INFORMATION
  Report Type: Report from Study
  Country: US (occurrence: US)
  Receive Date: 20131206
  Receipt Date: 20131206
  Transmission Date: 20140711
  Serious: Yes (Other)
  Sender: FDA-Public Use
  Company Number: US-ROCHE-1313306

PATIENT
  Age: 64 Year
  Sex: Female

DRUGS (6)
  1. RIBAVIRIN [Suspect]
     Indication: CHRONIC HEPATITIS C
     Dosage: FROM DAY 1 THROUGH WEEK 12 (84 DAYS)
     Route: 065
  2. ABT-267 [Suspect]
     Indication: CHRONIC HEPATITIS C
     Dosage: ON DAY 1 AND 2
     Route: 065
  3. ABT-267 [Suspect]
     Dosage: FROM DAY 1 THROUGH WEEK 12 (84 DAYS)
     Route: 065
  4. ABT-450 [Suspect]
     Indication: CHRONIC HEPATITIS C
     Dosage: QD, FROM DAY 1 THROUGH WEEK 12 (84 DAYS)
     Route: 065
  5. RITONAVIR [Suspect]
     Indication: CHRONIC HEPATITIS C
     Dosage: QD, FROM DAY 1 THROUGH WEEK 12 (84 DAYS)
     Route: 065
  6. ABT-333 [Suspect]
     Indication: CHRONIC HEPATITIS C
     Dosage: FROM DAY 1 THROUGH WEEK 12 (84 DAYS)
     Route: 065

REACTIONS (1)
  - Blood bilirubin increased [Unknown]
